FAERS Safety Report 7991534-1 (Version None)
Quarter: 2011Q4

REPORT INFORMATION
  Report Type: 
  Country: None (occurrence: None)
  Receive Date: 20111219
  Receipt Date: 20111213
  Transmission Date: 20120403
  Serious: Yes (Disabling)
  Sender: FDA-Public Use
  Company Number: FR-ROCHE-1021743

PATIENT
  Age: 65 Year
  Sex: Male

DRUGS (9)
  1. AVASTIN [Suspect]
     Indication: LUNG ADENOCARCINOMA
     Route: 042
  2. ALLOPURINOL [Concomitant]
     Route: 048
  3. VALSARTAN  AND HYDROCHLOROTHIAZIDE [Concomitant]
     Route: 048
  4. CISPLATIN [Suspect]
     Indication: LUNG ADENOCARCINOMA
  5. MOTILIUM (FRANCE) [Concomitant]
  6. GEMZAR [Suspect]
     Indication: LUNG ADENOCARCINOMA
  7. ACETAMINOPHEN [Concomitant]
  8. PLAVIX [Concomitant]
     Route: 048
  9. ZOFRAN [Concomitant]

REACTIONS (2)
  - PERICARDITIS [None]
  - ANGINA UNSTABLE [None]
